FAERS Safety Report 10019370 (Version 2)
Quarter: 2014Q1

REPORT INFORMATION
  Report Type: Spontaneous
  Country: US (occurrence: US)
  Receive Date: 20140318
  Receipt Date: 20140325
  Transmission Date: 20141002
  Serious: Yes (Other)
  Sender: FDA-Public Use
  Company Number: US-TEVA-469055USA

PATIENT
  Age: 45 Year
  Sex: Female
  Weight: 88.98 kg

DRUGS (1)
  1. PARAGARD 380A [Suspect]
     Indication: CONTRACEPTION
     Route: 015
     Dates: end: 20131203

REACTIONS (6)
  - Device dislocation [Recovered/Resolved]
  - Device breakage [Recovered/Resolved]
  - Medical device complication [Recovered/Resolved]
  - Menorrhagia [Recovered/Resolved]
  - Dysmenorrhoea [Unknown]
  - Abdominal pain [Unknown]
